FAERS Safety Report 21981062 (Version 1)
Quarter: 2023Q1

REPORT INFORMATION
  Report Type: Spontaneous
  Country: US (occurrence: US)
  Receive Date: 20230211
  Receipt Date: 20230211
  Transmission Date: 20230417
  Serious: No
  Sender: FDA-Public Use
  Company Number: US-GSKCCFUS-Case-01617102_AE-91336

PATIENT
  Sex: Female

DRUGS (3)
  1. TRELEGY ELLIPTA [Interacting]
     Active Substance: FLUTICASONE FUROATE\UMECLIDINIUM BROMIDE\VILANTEROL TRIFENATATE
     Indication: Asthma
     Dosage: 1 PUFF(S), QD, 100/62.5/25MCG
     Route: 055
     Dates: start: 20230123
  2. DUONEB [Interacting]
     Active Substance: ALBUTEROL SULFATE\IPRATROPIUM BROMIDE
     Indication: Product used for unknown indication
     Dosage: UNK, QID (DUONEB (NEBULIZER SOLUTION: ALBUTEROL AND IPRATROPIUM) TAKEN EVERY 6 H)
  3. PREDNISONE [Concomitant]
     Active Substance: PREDNISONE
     Indication: Product used for unknown indication
     Dosage: UNK (ORAL PREDNISONE TABLETS THAT SHE IS ^DEPENDENT^ ON)
     Route: 048

REACTIONS (5)
  - Dyspnoea [Recovered/Resolved]
  - Cough [Unknown]
  - Eye disorder [Recovered/Resolved]
  - Labelled drug-drug interaction medication error [Unknown]
  - Product dose omission issue [Unknown]
